FAERS Safety Report 7630820-1 (Version None)
Quarter: 2011Q3

REPORT INFORMATION
  Report Type: 
  Country: None (occurrence: None)
  Receive Date: 20110723
  Receipt Date: 20110714
  Transmission Date: 20111222
  Serious: Yes (Other)
  Sender: FDA-Public Use
  Company Number: US-ABBOTT-11P-163-0727639-00

PATIENT
  Sex: Female
  Weight: 90.346 kg

DRUGS (24)
  1. METHOTREXATE [Concomitant]
     Indication: RHEUMATOID ARTHRITIS
     Route: 048
  2. PROVENTIL [Concomitant]
     Indication: ASTHMA
     Dosage: 108 (90 BASE) MCG/ACT AEROSOL SOLUTION
  3. PRAVASTATIN SODIUM [Concomitant]
     Indication: BLOOD CHOLESTEROL
  4. LORATADINE [Concomitant]
     Indication: HYPERSENSITIVITY
  5. ALENDRONATE SODIUM [Concomitant]
     Indication: BONE DISORDER
  6. ASCORBIC ACID [Concomitant]
  7. MULTIVITAMIN FOR HER 50+ [Concomitant]
     Indication: PRODUCT USED FOR UNKNOWN INDICATION
  8. HUMIRA [Suspect]
     Indication: RHEUMATOID ARTHRITIS
     Dates: start: 20100701
  9. ALBUTEROL SULFATE AUTOHALER [Concomitant]
     Indication: ASTHMA
     Dosage: PER MACHINE AS NEEDED
  10. LYRICA [Concomitant]
     Indication: PRODUCT USED FOR UNKNOWN INDICATION
  11. WARFARIN SODIUM [Concomitant]
     Indication: PRODUCT USED FOR UNKNOWN INDICATION
     Dosage: 2MG SUN AND WED, 3MG REST OF DAYS
  12. ASCRIPTIN [Concomitant]
     Indication: PRODUCT USED FOR UNKNOWN INDICATION
  13. ASPIRIN [Concomitant]
     Indication: PRODUCT USED FOR UNKNOWN INDICATION
  14. ASCORBIC ACID [Concomitant]
     Indication: PRODUCT USED FOR UNKNOWN INDICATION
  15. ATENOLOL [Concomitant]
     Indication: PRODUCT USED FOR UNKNOWN INDICATION
     Dates: end: 20110427
  16. LIDODERM [Concomitant]
     Indication: PRODUCT USED FOR UNKNOWN INDICATION
     Dosage: 1 PATCH TO INTACT SKIN REMOVE AFTER 12 HOURS
  17. FOLIC ACID [Concomitant]
     Indication: VITAMIN SUPPLEMENTATION
  18. PREDNISONE [Concomitant]
     Indication: PRODUCT USED FOR UNKNOWN INDICATION
     Dosage: WITH FOOD OR MILK
  19. TRIAMTERENE AND HYDROCHLOROTHIAZIDE [Concomitant]
     Indication: CARDIAC DISORDER
     Dosage: 37.5-25 MG IN THE MORNING
  20. PLAVIX [Concomitant]
     Indication: PRODUCT USED FOR UNKNOWN INDICATION
     Dates: end: 20110413
  21. DILTIAZEM [Concomitant]
     Indication: HEART RATE INCREASED
     Dosage: EVERY MORNING ON AN EMPTY STOMACH
  22. MATURE COMPLETE MULTIVITAMIN ONE DAILY [Concomitant]
     Indication: PRODUCT USED FOR UNKNOWN INDICATION
  23. SINGULAIR [Concomitant]
     Indication: ASTHMA
     Dosage: IN THE EVENING
  24. NEURONTIN [Concomitant]
     Indication: PRODUCT USED FOR UNKNOWN INDICATION
     Dates: end: 20110427

REACTIONS (38)
  - GAIT DISTURBANCE [None]
  - BLOOD PRESSURE ABNORMAL [None]
  - VASCULITIS [None]
  - BACK PAIN [None]
  - RHONCHI [None]
  - EYE PAIN [None]
  - DRY MOUTH [None]
  - CARPAL TUNNEL SYNDROME [None]
  - MUSCULOSKELETAL STIFFNESS [None]
  - CEREBROVASCULAR ACCIDENT [None]
  - EMBOLISM VENOUS [None]
  - NEUROPATHY PERIPHERAL [None]
  - VISUAL IMPAIRMENT [None]
  - TINNITUS [None]
  - TRANSIENT ISCHAEMIC ATTACK [None]
  - OEDEMA PERIPHERAL [None]
  - VERTIGO [None]
  - PHOTOPSIA [None]
  - ARTHRALGIA [None]
  - HEMIANOPIA [None]
  - ARTERIAL SPASM [None]
  - DYSPNOEA [None]
  - DIARRHOEA [None]
  - HYPOACUSIS [None]
  - VISION BLURRED [None]
  - PARAESTHESIA [None]
  - NAUSEA [None]
  - MUSCULAR WEAKNESS [None]
  - EPISTAXIS [None]
  - COUGH [None]
  - WHEEZING [None]
  - PULMONARY EMBOLISM [None]
  - HALLUCINATION [None]
  - HEADACHE [None]
  - BLINDNESS UNILATERAL [None]
  - VISUAL FIELD DEFECT [None]
  - SENSATION OF HEAVINESS [None]
  - ALOPECIA [None]
